FAERS Safety Report 4486337-9 (Version None)
Quarter: 2004Q4

REPORT INFORMATION
  Report Type: 
  Country: None (occurrence: None)
  Receive Date: 20041027
  Receipt Date: 20041013
  Transmission Date: 20050328
  Serious: Yes (Other)
  Sender: FDA-Public Use
  Company Number: JP-JNJFOC-20040405438

PATIENT
  Sex: Female
  Weight: 43 kg

DRUGS (9)
  1. REMICADE [Suspect]
     Route: 041
     Dates: start: 20020723
  2. REMICADE [Suspect]
     Route: 041
     Dates: start: 20020723
  3. REMICADE [Suspect]
     Indication: CROHN'S DISEASE
     Route: 041
     Dates: start: 20020723
  4. PENTASA [Concomitant]
     Indication: CROHN'S DISEASE
     Route: 049
     Dates: start: 20040109, end: 20040127
  5. SALAZOPYRIN [Concomitant]
     Indication: CROHN'S DISEASE
     Route: 049
     Dates: start: 20031106, end: 20040109
  6. DAIKENCHUTO [Concomitant]
     Route: 049
  7. GASTER [Concomitant]
     Route: 049
  8. TPN [Concomitant]
  9. ENTERAL NUTRITION [Concomitant]

REACTIONS (10)
  - CATHETER RELATED INFECTION [None]
  - CATHETER SITE ERYTHEMA [None]
  - DRUG INEFFECTIVE [None]
  - HAEMATOCRIT DECREASED [None]
  - HAEMOGLOBIN DECREASED [None]
  - LETHARGY [None]
  - PURULENT DISCHARGE [None]
  - SEPSIS [None]
  - SMALL INTESTINAL RESECTION [None]
  - STAPHYLOCOCCAL INFECTION [None]
